FAERS Safety Report 6046412-4 (Version None)
Quarter: 2009Q1

REPORT INFORMATION
  Report Type: 
  Country: None (occurrence: None)
  Receive Date: 20090121
  Receipt Date: 20090121
  Transmission Date: 20090719
  Serious: Yes (Other)
  Sender: FDA-Public Use
  Company Number: None

PATIENT
  Age: 17 Year
  Sex: Male
  Weight: 63.5036 kg

DRUGS (1)
  1. ACCUTANE [Suspect]
     Indication: ACNE
     Dates: start: 20020201, end: 20020602

REACTIONS (1)
  - NO ADVERSE EVENT [None]
